FAERS Safety Report 9694450 (Version 1)
Quarter: 2013Q4

REPORT INFORMATION
  Report Type: Spontaneous
  Country: US (occurrence: US)
  Receive Date: 20131118
  Receipt Date: 20131118
  Transmission Date: 20140711
  Serious: No
  Sender: FDA-Public Use
  Company Number: US-PFIZER INC-2013326771

PATIENT
  Age: 54 Year
  Sex: Female
  Weight: 75.28 kg

DRUGS (8)
  1. DAYPRO [Suspect]
     Indication: ARTHRITIS
     Dosage: 600 MG, 2X/DAY
     Dates: end: 20131111
  2. TRILIPIX [Concomitant]
     Dosage: 135 MG, 1X/DAY
  3. NEXIUM [Concomitant]
     Indication: GASTROOESOPHAGEAL REFLUX DISEASE
     Dosage: 40 MG, 1X/DAY
  4. LYRICA [Concomitant]
     Indication: FIBROMYALGIA
     Dosage: 5 MG, 3X/DAY
  5. SAVELLA [Concomitant]
     Indication: FIBROMYALGIA
     Dosage: 50 MG, 2X/DAY
  6. CRESTOR [Concomitant]
     Indication: BLOOD CHOLESTEROL INCREASED
     Dosage: 20 MG, 1X/DAY
  7. TOPAMAX [Concomitant]
     Indication: MIGRAINE
     Dosage: 50 MG, 2X/DAY
  8. HYDROCHLOROTHIAZIDE [Concomitant]
     Indication: BLOOD PRESSURE ABNORMAL
     Dosage: 25 MG, 1X/DAY

REACTIONS (6)
  - Anaemia [Unknown]
  - Renal disorder [Unknown]
  - Back pain [Recovering/Resolving]
  - Constipation [Unknown]
  - Pre-existing condition improved [Unknown]
  - Therapeutic response unexpected [Unknown]
